FAERS Safety Report 5512195-7 (Version None)
Quarter: 2007Q4

REPORT INFORMATION
  Report Type: 
  Country: None (occurrence: None)
  Receive Date: 20071112
  Receipt Date: 20071031
  Transmission Date: 20080405
  Serious: Yes (Other)
  Sender: FDA-Public Use
  Company Number: PHBS2007FI18462

PATIENT
  Age: 16 Year
  Sex: Male

DRUGS (11)
  1. SANDIMMUNE [Suspect]
     Indication: HEART TRANSPLANT
     Dosage: 150 MG/DAY
     Route: 065
     Dates: start: 19980101, end: 20061001
  2. SANDIMMUNE [Suspect]
     Dosage: 135 MG/DAY
     Route: 065
     Dates: start: 20061001, end: 20061201
  3. SANDIMMUNE [Suspect]
     Dosage: 175 MG/DAY
     Route: 065
     Dates: start: 20061201
  4. ASPIRIN [Concomitant]
     Dosage: 50 MG/DAY
     Dates: start: 19980101
  5. KALCIPOS-D [Concomitant]
     Dosage: 500 MG/DAY
     Dates: start: 19980101
  6. VITAMIN D [Concomitant]
     Dosage: 3 TAB/DAY
     Dates: start: 19980101
  7. MEDROL [Concomitant]
     Indication: HEART TRANSPLANT
     Dates: start: 19980101
  8. PRAVACHOL [Concomitant]
     Dosage: 10 MG/DAY
     Dates: start: 20020101
  9. METFORMIN [Concomitant]
     Dosage: 1000 MG/DAY
     Dates: start: 20020101
  10. CERTICAN [Concomitant]
     Indication: HEART TRANSPLANT
     Dosage: 1.5 MG/DAY
     Route: 065
     Dates: start: 20061011, end: 20061212
  11. CELLCEPT [Concomitant]
     Indication: HEART TRANSPLANT
     Dates: start: 20061201

REACTIONS (4)
  - BLOOD GLUCOSE INCREASED [None]
  - CORONARY ARTERY STENOSIS [None]
  - EPILEPSY [None]
  - HEART TRANSPLANT REJECTION [None]
